FAERS Safety Report 7971457-4 (Version None)
Quarter: 2011Q4

REPORT INFORMATION
  Report Type: 
  Country: None (occurrence: None)
  Receive Date: 20111212
  Receipt Date: 20111206
  Transmission Date: 20120403
  Serious: No
  Sender: FDA-Public Use
  Company Number: US-PFIZER INC-2011281759

PATIENT
  Sex: Female

DRUGS (7)
  1. LEVOTHYROXINE [Concomitant]
     Dosage: 0.125 MG, 1X/DAY
  2. ATENOLOL [Concomitant]
     Dosage: 25 MG, 1X/DAY
  3. CHLORTHALIDONE [Concomitant]
     Dosage: 25 MG, 5 DAYS A WEEK
  4. CLEOCIN HYDROCHLORIDE [Suspect]
     Indication: ULCER
     Dosage: 1% GEL ON WOUND TWICE DAILY
     Route: 061
     Dates: start: 20111001
  5. IBUPROFEN [Concomitant]
     Dosage: 400 MG, 4 TO 5 TIMES A DAY
  6. PREDNISONE [Concomitant]
     Dosage: 1 MG, 2X/DAY
  7. CLEOCIN HYDROCHLORIDE [Suspect]
     Indication: WOUND INFECTION STAPHYLOCOCCAL

REACTIONS (1)
  - IMPAIRED HEALING [None]
